FAERS Safety Report 4903602-9 (Version None)
Quarter: 2006Q1

REPORT INFORMATION
  Report Type: 
  Country: None (occurrence: None)
  Receive Date: 20060203
  Receipt Date: 20060125
  Transmission Date: 20060701
  Serious: Yes (Hospitalization)
  Sender: FDA-Public Use
  Company Number: 2005BI018823

PATIENT
  Age: 55 Year
  Sex: Female

DRUGS (7)
  1. AVONEX LYOPHILIZED [Suspect]
     Indication: MULTIPLE SCLEROSIS
     Dosage: 30 U; QW; IM
     Route: 030
     Dates: start: 20011010
  2. BACLOFEN [Concomitant]
  3. ESTRADIOL [Concomitant]
  4. ANTIVERT [Concomitant]
  5. NEXIUM [Concomitant]
  6. SYNTHROID [Concomitant]
  7. ADVAIR DISKUS 100/50 [Concomitant]

REACTIONS (6)
  - ASTHMA [None]
  - BRONCHITIS [None]
  - CONDITION AGGRAVATED [None]
  - HALLUCINATION [None]
  - HERPES ZOSTER [None]
  - PNEUMONIA [None]
